FAERS Safety Report 17891917 (Version 1)
Quarter: 2020Q2

REPORT INFORMATION
  Report Type: Spontaneous
  Country: FR (occurrence: FR)
  Receive Date: 20200612
  Receipt Date: 20200612
  Transmission Date: 20200714
  Serious: Yes (Hospitalization)
  Sender: FDA-Public Use
  Company Number: NVSC2020FR164304

PATIENT
  Age: 59 Year
  Sex: Female

DRUGS (4)
  1. SIVEXTRO [Suspect]
     Active Substance: TEDIZOLID PHOSPHATE
     Indication: DISSEMINATED TUBERCULOSIS
     Dosage: 200 MG, QD
     Route: 048
     Dates: start: 20191118
  2. SIRTURO [Suspect]
     Active Substance: BEDAQUILINE FUMARATE
     Indication: DISSEMINATED TUBERCULOSIS
     Dosage: 600 MG, QW
     Route: 048
     Dates: start: 20190902
  3. DELTYBA [Suspect]
     Active Substance: DELAMANID
     Indication: DISSEMINATED TUBERCULOSIS
     Dosage: 200 MG, QD
     Route: 048
     Dates: start: 20190924
  4. LAMPRENE [Suspect]
     Active Substance: CLOFAZIMINE
     Indication: DISSEMINATED TUBERCULOSIS
     Dosage: 100 MG, QD
     Route: 048
     Dates: start: 20190902

REACTIONS (2)
  - Cholestasis [Not Recovered/Not Resolved]
  - Hepatocellular injury [Not Recovered/Not Resolved]

NARRATIVE: CASE EVENT DATE: 2020
